FAERS Safety Report 7419847-2 (Version None)
Quarter: 2011Q2

REPORT INFORMATION
  Report Type: 
  Country: None (occurrence: None)
  Receive Date: 20110418
  Receipt Date: 20110406
  Transmission Date: 20111010
  Serious: Yes (Other)
  Sender: FDA-Public Use
  Company Number: GB-TEVA-276432ISR

PATIENT
  Age: 56 Year
  Sex: Female

DRUGS (1)
  1. BECLOMETHASONE DIPROPIONATE [Suspect]
     Indication: ASTHMA
     Dosage: 200 MICROGRAM;
     Route: 055
     Dates: start: 20100816, end: 20110101

REACTIONS (1)
  - CHORIORETINOPATHY [None]
